FAERS Safety Report 9116645 (Version 1)
Quarter: 2013Q1

REPORT INFORMATION
  Report Type: Spontaneous
  Country: FR (occurrence: FR)
  Receive Date: 20130225
  Receipt Date: 20130225
  Transmission Date: 20140127
  Serious: Yes (Death, Hospitalization)
  Sender: FDA-Public Use
  Company Number: PHHY2013FR018258

PATIENT
  Sex: Male

DRUGS (9)
  1. NEORAL [Suspect]
     Dosage: 125 MG, BID
     Dates: start: 201211
  2. BACTRIM FORTE [Concomitant]
     Dosage: 1 DF, QW
  3. LEDERFOLINE [Concomitant]
     Dosage: 50 MG, QW
  4. MAGNESIUM [Concomitant]
     Dosage: 100 MG, TID
  5. ORACILLINE [Concomitant]
  6. ZELITREX [Concomitant]
     Dosage: 500 MG, BID
  7. MOPRAL [Concomitant]
     Dosage: 40 MG, QD
  8. NOXAFIL [Concomitant]
     Dosage: 200 MG, QID
  9. SOLUPRED [Concomitant]
     Dosage: 10 MG, QD

REACTIONS (1)
  - Posterior reversible encephalopathy syndrome [Fatal]
